FAERS Safety Report 21677105 (Version 1)
Quarter: 2022Q4

REPORT INFORMATION
  Report Type: Spontaneous
  Country: IT (occurrence: IT)
  Receive Date: 20221203
  Receipt Date: 20221203
  Transmission Date: 20230113
  Serious: Yes (Hospitalization, Other)
  Sender: FDA-Public Use
  Company Number: None

PATIENT
  Age: 76 Year
  Sex: Female
  Weight: 61 kg

DRUGS (1)
  1. DUPILUMAB [Suspect]
     Active Substance: DUPILUMAB
     Dosage: 300 MG, QOW
     Route: 058

REACTIONS (4)
  - Eosinophilic pneumonia [Unknown]
  - Respiratory failure [Unknown]
  - Bronchioloalveolar carcinoma [Unknown]
  - Eosinophilia [Unknown]

NARRATIVE: CASE EVENT DATE: 20220901
